FAERS Safety Report 8825195 (Version 1)
Quarter: 2012Q4

REPORT INFORMATION
  Report Type: 
  Country: US (occurrence: US)
  Receive Date: 20121004
  Receipt Date: 20121004
  Transmission Date: 20130627
  Serious: Yes (Other)
  Sender: FDA-Public Use
  Company Number: US-TEVA-361072USA

PATIENT
  Sex: Female
  Weight: 52.66 kg

DRUGS (3)
  1. MIRTAZAPINE [Suspect]
     Indication: MUSCLE TIGHTNESS
     Dosage: 15 Milligram Daily;
     Dates: start: 201108
  2. CLONAZEPAM [Suspect]
     Indication: ANXIETY
     Dosage: .125 Milligram Daily;
     Dates: start: 201012, end: 201208
  3. ESCITALOPRAM OXALATE [Suspect]
     Dosage: 10 Milligram Daily;
     Dates: start: 201109, end: 201208

REACTIONS (4)
  - Drug withdrawal syndrome [Not Recovered/Not Resolved]
  - Drug dependence [Unknown]
  - Drug intolerance [Unknown]
  - Adverse event [Unknown]
